FAERS Safety Report 17395879 (Version 2)
Quarter: 2020Q2

REPORT INFORMATION
  Report Type: Spontaneous
  Country: FR (occurrence: FR)
  Receive Date: 20200210
  Receipt Date: 20200413
  Transmission Date: 20200713
  Serious: Yes (Hospitalization, Other)
  Sender: FDA-Public Use
  Company Number: FR-009507513-2002FRA002250

PATIENT
  Sex: Male
  Weight: 43 kg

DRUGS (1)
  1. NOXAFIL [Suspect]
     Active Substance: POSACONAZOLE
     Dosage: 100 MILLIGRAM, UNK
     Route: 048

REACTIONS (2)
  - Product use issue [Unknown]
  - Acute lymphocytic leukaemia recurrent [Unknown]
